FAERS Safety Report 13775629 (Version 1)
Quarter: 2017Q3

REPORT INFORMATION
  Report Type: Spontaneous
  Country: US (occurrence: US)
  Receive Date: 20170720
  Receipt Date: 20170720
  Transmission Date: 20171127
  Serious: No
  Sender: FDA-Public Use
  Company Number: US-BAUSCH-BL-2016-026496

PATIENT
  Age: 8 Decade
  Sex: Male

DRUGS (6)
  1. BESIVANCE [Suspect]
     Active Substance: BESIFLOXACIN
     Indication: SECRETION DISCHARGE
  2. PREDNISOLONE. [Suspect]
     Active Substance: PREDNISOLONE
     Indication: SECRETION DISCHARGE
  3. PREDNISOLONE. [Suspect]
     Active Substance: PREDNISOLONE
     Indication: KERATITIS
     Route: 047
  4. PREDNISOLONE. [Suspect]
     Active Substance: PREDNISOLONE
     Indication: BLEPHARITIS
  5. BESIVANCE [Suspect]
     Active Substance: BESIFLOXACIN
     Indication: BLEPHARITIS
  6. BESIVANCE [Suspect]
     Active Substance: BESIFLOXACIN
     Indication: KERATITIS
     Route: 047
     Dates: start: 2016

REACTIONS (5)
  - Keratitis [Not Recovered/Not Resolved]
  - Secretion discharge [Not Recovered/Not Resolved]
  - Condition aggravated [Not Recovered/Not Resolved]
  - Blepharitis [Not Recovered/Not Resolved]
  - Discomfort [Not Recovered/Not Resolved]

NARRATIVE: CASE EVENT DATE: 2016
